FAERS Safety Report 7520702-8 (Version None)
Quarter: 2011Q2

REPORT INFORMATION
  Report Type: 
  Country: None (occurrence: None)
  Receive Date: 20110603
  Receipt Date: 20110525
  Transmission Date: 20111010
  Serious: Yes (Hospitalization)
  Sender: FDA-Public Use
  Company Number: FR-BRISTOL-MYERS SQUIBB COMPANY-15782915

PATIENT
  Age: 99 Year
  Sex: Female

DRUGS (7)
  1. LASIX [Concomitant]
  2. AMLODIPINE [Concomitant]
  3. CLINDAMYCIN HCL [Suspect]
     Indication: ULCER
     Dates: start: 20110401, end: 20110416
  4. LEVOTHYROXINE SODIUM [Concomitant]
  5. IRBESARTAN [Suspect]
     Indication: HYPERTENSION
     Route: 048
     Dates: end: 20110407
  6. ALLOPURINOL [Concomitant]
  7. OFLOXACIN [Concomitant]
     Indication: ULCER

REACTIONS (5)
  - INFECTED SKIN ULCER [None]
  - VOMITING [None]
  - DEHYDRATION [None]
  - RENAL FAILURE ACUTE [None]
  - NAUSEA [None]
